FAERS Safety Report 20853232 (Version 2)
Quarter: 2022Q3

REPORT INFORMATION
  Report Type: Spontaneous
  Country: US (occurrence: US)
  Receive Date: 20220520
  Receipt Date: 20220826
  Transmission Date: 20221026
  Serious: No
  Sender: FDA-Public Use
  Company Number: US-PFIZER INC-202200713059

PATIENT
  Age: 67 Year
  Sex: Male
  Weight: 73.94 kg

DRUGS (2)
  1. PAXLOVID [Suspect]
     Active Substance: NIRMATRELVIR\RITONAVIR
     Indication: COVID-19 treatment
     Dosage: [PF-07321332 300 MG]/[RITONAVIR 100 MG]; 2X/DAY
     Dates: start: 20220504, end: 20220508
  2. MELOXICAM [Concomitant]
     Active Substance: MELOXICAM
     Dosage: 7.5 MG

REACTIONS (3)
  - COVID-19 [Not Recovered/Not Resolved]
  - Disease recurrence [Not Recovered/Not Resolved]
  - Taste disorder [Unknown]

NARRATIVE: CASE EVENT DATE: 20220512
